FAERS Safety Report 5274360-6 (Version None)
Quarter: 2007Q1

REPORT INFORMATION
  Report Type: 
  Country: None (occurrence: None)
  Receive Date: 20070323
  Receipt Date: 20060927
  Transmission Date: 20070707
  Serious: Yes (Other)
  Sender: FDA-Public Use
  Company Number: US-PFIZER INC-2006117669

PATIENT
  Sex: Female

DRUGS (15)
  1. GEODON [Suspect]
  2. TRAZODONE HCL [Concomitant]
  3. DEPAKOTE [Concomitant]
  4. LAMICTAL [Concomitant]
  5. SYNTHROID [Concomitant]
  6. FUROSEMIDE [Concomitant]
  7. LISINOPRIL [Concomitant]
  8. ZANTAC [Concomitant]
  9. PRAVACHOL [Concomitant]
  10. TRENTAL ^ALBERT-ROUSSEL^ [Concomitant]
  11. ALBUTEROL [Concomitant]
     Route: 055
  12. POTASSIUM ACETATE [Concomitant]
  13. ACETYLSALICYLIC ACID SRT [Concomitant]
  14. IBUPROFEN [Concomitant]
  15. FAMOTIDINE [Concomitant]

REACTIONS (2)
  - OVERDOSE [None]
  - RENAL DISORDER [None]
